FAERS Safety Report 9142653 (Version 3)
Quarter: 2013Q3

REPORT INFORMATION
  Report Type: Spontaneous
  Country: JP (occurrence: JP)
  Receive Date: 20130306
  Receipt Date: 20130930
  Transmission Date: 20140515
  Serious: Yes (Other)
  Sender: FDA-Public Use
  Company Number: PHHY2013JP021655

PATIENT
  Age: 65 Year
  Sex: Female

DRUGS (5)
  1. ZOMETA [Suspect]
     Indication: METASTASES TO BONE
     Dosage: 4 MG, PER ADMINISTRATION
     Route: 041
     Dates: start: 20100701
  2. TAXOTERE [Concomitant]
     Indication: BREAST CANCER
     Dosage: UNK
     Route: 042
     Dates: start: 20100610, end: 20101019
  3. TS-1 [Concomitant]
     Indication: BREAST CANCER
     Dosage: 80 MG, UNK
     Route: 048
     Dates: start: 20101109, end: 20120704
  4. GEMCITABINE [Concomitant]
     Indication: BREAST CANCER
     Dosage: UNK UKN, UNK
     Route: 042
     Dates: start: 20121130
  5. GEMZAR [Concomitant]
     Indication: BREAST CANCER
     Dosage: UNK UKN, UNK
     Route: 042
     Dates: start: 20120724, end: 20121116

REACTIONS (14)
  - Osteonecrosis of jaw [Not Recovered/Not Resolved]
  - Decubitus ulcer [Not Recovered/Not Resolved]
  - Swelling [Unknown]
  - Exposed bone in jaw [Unknown]
  - Gingival swelling [Unknown]
  - Oral pain [Unknown]
  - Oral mucosal erythema [Unknown]
  - Tenderness [Unknown]
  - Oral cavity fistula [Unknown]
  - Purulent discharge [Unknown]
  - Hypoaesthesia [Unknown]
  - Stomatitis [Unknown]
  - Pyrexia [Unknown]
  - Oral candidiasis [Not Recovered/Not Resolved]
